FAERS Safety Report 9717613 (Version 1)
Quarter: 2013Q4

REPORT INFORMATION
  Report Type: Spontaneous
  Country: NL (occurrence: NL)
  Receive Date: 20131127
  Receipt Date: 20131127
  Transmission Date: 20140711
  Serious: Yes (Hospitalization, Other)
  Sender: FDA-Public Use
  Company Number: NL-TEVA-445176ISR

PATIENT
  Age: 33 Year
  Sex: Male

DRUGS (6)
  1. PREDNISOLONE [Suspect]
     Indication: SINUSITIS
     Dosage: 30 MILLIGRAM DAILY;
     Route: 048
     Dates: start: 201302
  2. PREDNISOLONE [Suspect]
     Indication: LARYNGITIS
     Dosage: 30 MILLIGRAM DAILY;
     Dates: start: 201305
  3. PREDNISOLONE ACTAVIS [Suspect]
     Indication: SINUSITIS
     Dosage: 40 MILLIGRAM DAILY;
     Route: 048
  4. PREDNISOLONE ACTAVIS [Suspect]
     Indication: LARYNGITIS
  5. FLUCLOXACILLINE ACTAVIS [Concomitant]
     Indication: LARYNGITIS
  6. FLUCLOXACILLINE ACTAVIS [Concomitant]
     Indication: SINUSITIS

REACTIONS (2)
  - Thirst [Not Recovered/Not Resolved]
  - Diabetes insipidus [Unknown]
